FAERS Safety Report 5403072-0 (Version None)
Quarter: 2007Q3

REPORT INFORMATION
  Report Type: 
  Country: None (occurrence: None)
  Receive Date: 20070713
  Receipt Date: 20070430
  Transmission Date: 20080115
  Serious: Yes (Hospitalization)
  Sender: FDA-Public Use
  Company Number: US-JNJFOC-20061105866

PATIENT
  Age: 29 Year
  Sex: Female
  Weight: 75.2971 kg

DRUGS (5)
  1. ORTHO EVRA [Suspect]
     Indication: DRUG USE FOR UNKNOWN INDICATION
     Dosage: TRANSDERMAL
     Route: 062
     Dates: start: 20041001, end: 20041021
  2. ZYRTEC [Concomitant]
  3. ALEVE [Concomitant]
  4. BACTRIM DS [Concomitant]
  5. NAPROSYN [Concomitant]

REACTIONS (1)
  - PULMONARY EMBOLISM [None]
